FAERS Safety Report 6828075-0 (Version None)
Quarter: 2010Q3

REPORT INFORMATION
  Report Type: 
  Country: None (occurrence: None)
  Receive Date: 20100709
  Receipt Date: 20100702
  Transmission Date: 20110219
  Serious: Yes (Hospitalization)
  Sender: FDA-Public Use
  Company Number: US-GENENTECH-303924

PATIENT
  Age: 67 Year
  Sex: Male

DRUGS (1)
  1. RITUXAN [Suspect]
     Indication: RHEUMATOID ARTHRITIS

REACTIONS (3)
  - CHEST PAIN [None]
  - PULMONARY HAEMORRHAGE [None]
  - SHOCK [None]
